FAERS Safety Report 17565267 (Version 3)
Quarter: 2020Q2

REPORT INFORMATION
  Report Type: Report from Study
  Country: US (occurrence: US)
  Receive Date: 20200320
  Receipt Date: 20200406
  Transmission Date: 20200713
  Serious: Yes (Hospitalization, Other)
  Sender: FDA-Public Use
  Company Number: US-EMD SERONO-9152114

PATIENT
  Age: 53 Year
  Sex: Female

DRUGS (2)
  1. MAVENCLAD [Suspect]
     Active Substance: CLADRIBINE
     Indication: MULTIPLE SCLEROSIS
     Dosage: YEAR ONE MONTH ONE THERAPY
     Route: 048
     Dates: start: 20200207
  2. MAVENCLAD [Suspect]
     Active Substance: CLADRIBINE
     Dosage: YEAR ONE MONTH TWO THERAPY: THE PATIENT HAD TAKEN ONLY ONE DOSE OF YEAR ONE MONTH TWO TREATMENT AS O
     Route: 048
     Dates: start: 20200310

REACTIONS (6)
  - International normalised ratio abnormal [Unknown]
  - Eye discharge [Unknown]
  - Vision blurred [Unknown]
  - Vascular device infection [Unknown]
  - Fungal infection [Unknown]
  - Fatigue [Unknown]

NARRATIVE: CASE EVENT DATE: 202003
